FAERS Safety Report 8974385 (Version 1)
Quarter: 2012Q4

REPORT INFORMATION
  Report Type: 
  Country: JP (occurrence: JP)
  Receive Date: 20121220
  Receipt Date: 20121220
  Transmission Date: 20130627
  Serious: Yes (Death)
  Sender: FDA-Public Use
  Company Number: JP-ASTELLAS-2012US012446

PATIENT
  Sex: Female

DRUGS (1)
  1. AMBISOME [Suspect]
     Indication: FUNGAL INFECTION
     Dosage: UNK
     Route: 065

REACTIONS (1)
  - Infection [Fatal]
